FAERS Safety Report 16950480 (Version 2)
Quarter: 2020Q1

REPORT INFORMATION
  Report Type: Report from Study
  Country: EG (occurrence: EG)
  Receive Date: 20191023
  Receipt Date: 20200331
  Transmission Date: 20200409
  Serious: Yes (Other)
  Sender: FDA-Public Use
  Company Number: NVSC2019EG011527

PATIENT
  Age: 30 Year
  Sex: Male

DRUGS (2)
  1. TASIGNA [Suspect]
     Active Substance: NILOTINIB
     Indication: CHRONIC MYELOID LEUKAEMIA
     Dosage: 800 MG, UNKNOWN
     Route: 048
     Dates: start: 201805, end: 201905
  2. GLIVEC [Suspect]
     Active Substance: IMATINIB MESYLATE
     Indication: CHRONIC MYELOID LEUKAEMIA
     Dosage: 400 MG, QD
     Route: 065
     Dates: start: 201705, end: 201805

REACTIONS (6)
  - Hepatic cirrhosis [Recovering/Resolving]
  - Polymerase chain reaction positive [Recovered/Resolved]
  - Jaundice [Recovering/Resolving]
  - Asthenia [Recovering/Resolving]
  - Blood bilirubin increased [Recovered/Resolved]
  - Fatigue [Recovering/Resolving]

NARRATIVE: CASE EVENT DATE: 201805
